FAERS Safety Report 12571844 (Version 1)
Quarter: 2016Q3

REPORT INFORMATION
  Report Type: Spontaneous
  Country: US (occurrence: US)
  Receive Date: 20160719
  Receipt Date: 20160719
  Transmission Date: 20161109
  Serious: No
  Sender: FDA-Public Use
  Company Number: US-BAUSCH-BL-2015-021775

PATIENT
  Sex: Male

DRUGS (2)
  1. XIFAXAN [Suspect]
     Active Substance: RIFAXIMIN
     Route: 048
     Dates: start: 2015
  2. XIFAXAN [Suspect]
     Active Substance: RIFAXIMIN
     Indication: POST PROCEDURAL DIARRHOEA
     Route: 048
     Dates: start: 2015

REACTIONS (2)
  - Urticaria [Not Recovered/Not Resolved]
  - Incorrect dose administered [Unknown]
